FAERS Safety Report 7947259-1 (Version None)
Quarter: 2011Q4

REPORT INFORMATION
  Report Type: 
  Country: None (occurrence: None)
  Receive Date: 20111129
  Receipt Date: 20111117
  Transmission Date: 20120403
  Serious: Yes (Other)
  Sender: FDA-Public Use
  Company Number: US-ASTRAZENECA-2011SE70435

PATIENT
  Age: 63 Year
  Sex: Male
  Weight: 68 kg

DRUGS (9)
  1. URSODIOL [Concomitant]
  2. VENTOLIN [Concomitant]
     Dosage: AS NEEDED
  3. LISINOPRIL [Concomitant]
     Indication: BLOOD PRESSURE
     Route: 048
  4. ASPIRIN [Concomitant]
     Indication: BLOOD DISORDER
  5. PLAVIX [Concomitant]
     Indication: CEREBROVASCULAR ACCIDENT
     Dates: start: 20010101
  6. FLOMAX [Concomitant]
     Indication: BLADDER DISORDER
  7. CLONAZEPAM [Concomitant]
     Indication: NERVOUSNESS
     Dates: start: 20010101
  8. SYMBICORT [Suspect]
     Indication: CHRONIC OBSTRUCTIVE PULMONARY DISEASE
     Dosage: 160/4.5 TWO PUFFS TWICE A DAY
     Route: 055
     Dates: start: 20111109
  9. METOPROLOL TARTRATE [Concomitant]
     Indication: BLOOD PRESSURE
     Route: 048

REACTIONS (5)
  - BLADDER DISCOMFORT [None]
  - CEREBROVASCULAR ACCIDENT [None]
  - PERIPHERAL ARTERIAL OCCLUSIVE DISEASE [None]
  - CHEST PAIN [None]
  - LIVER DISORDER [None]
